FAERS Safety Report 16149673 (Version 2)
Quarter: 2019Q2

REPORT INFORMATION
  Report Type: Spontaneous
  Country: AU (occurrence: AU)
  Receive Date: 20190402
  Receipt Date: 20190412
  Transmission Date: 20190711
  Serious: Yes (Other)
  Sender: FDA-Public Use
  Company Number: AU-MYLANLABS-2019M1028429

PATIENT
  Sex: Female
  Weight: 112 kg

DRUGS (1)
  1. CLOZARIL [Suspect]
     Active Substance: CLOZAPINE
     Indication: SCHIZOPHRENIA
     Dosage: 550 MILLIGRAM
     Route: 048
     Dates: start: 19940810

REACTIONS (2)
  - Cardiac disorder [Unknown]
  - Adverse event [Unknown]
